FAERS Safety Report 26101128 (Version 1)
Quarter: 2025Q4

REPORT INFORMATION
  Report Type: Spontaneous
  Country: AU (occurrence: AU)
  Receive Date: 20251128
  Receipt Date: 20251128
  Transmission Date: 20260118
  Serious: Yes (Life-Threatening)
  Sender: SANDOZ
  Company Number: AU-SANDOZ-SDZ2025AU089413

PATIENT
  Sex: Male

DRUGS (2)
  1. EZETIMIBE [Suspect]
     Active Substance: EZETIMIBE
     Indication: Product used for unknown indication
     Dosage: UNK
     Route: 065
  2. INCLISIRAN [Suspect]
     Active Substance: INCLISIRAN
     Indication: Product used for unknown indication
     Dosage: 284MG/1.5ML EVERY 6 MONTHS
     Route: 065

REACTIONS (2)
  - Coronary artery disease [Unknown]
  - Low density lipoprotein abnormal [Unknown]
